FAERS Safety Report 5890233-X (Version None)
Quarter: 2008Q3

REPORT INFORMATION
  Report Type: 
  Country: None (occurrence: None)
  Receive Date: 20080919
  Receipt Date: 20080910
  Transmission Date: 20090109
  Serious: Yes (Death, Hospitalization)
  Sender: FDA-Public Use
  Company Number: JP-PFIZER INC-2008076743

PATIENT
  Age: 65 Year
  Sex: Male

DRUGS (9)
  1. NORVASC [Suspect]
     Route: 048
  2. SOLU-MEDROL [Suspect]
     Dosage: DAILY DOSE:1GRAM
     Route: 042
  3. NIFEKALANT HYDROCHLORIDE [Suspect]
     Route: 042
  4. XYLOCAINE [Suspect]
  5. CIPROFLOXACIN HCL [Suspect]
     Route: 042
  6. ELASPOL [Suspect]
     Route: 042
  7. ASPIRIN [Suspect]
     Route: 048
  8. LANSOPRAZOLE [Suspect]
  9. CALBLOCK [Suspect]
     Route: 048

REACTIONS (2)
  - CARDIAC FAILURE ACUTE [None]
  - TOXIC EPIDERMAL NECROLYSIS [None]
